FAERS Safety Report 7485033-3 (Version None)
Quarter: 2011Q2

REPORT INFORMATION
  Report Type: 
  Country: None (occurrence: None)
  Receive Date: 20110517
  Receipt Date: 20101021
  Transmission Date: 20111010
  Serious: No
  Sender: FDA-Public Use
  Company Number: US-BAYER-201022828BCC

PATIENT
  Age: 2 Year
  Sex: Male
  Weight: 13.636 kg

DRUGS (2)
  1. CLOTRIMAZOLE [Concomitant]
     Indication: TINEA INFECTION
  2. NAPROXEN (ALEVE) [Suspect]
     Indication: ACCIDENTAL DRUG INTAKE BY CHILD
     Dosage: 220 MG, ONCE
     Route: 048
     Dates: start: 20101021

REACTIONS (1)
  - FATIGUE [None]
